FAERS Safety Report 21887825 (Version 1)
Quarter: 2023Q1

REPORT INFORMATION
  Report Type: Spontaneous
  Country: CN (occurrence: CN)
  Receive Date: 20230120
  Receipt Date: 20230120
  Transmission Date: 20230417
  Serious: Yes (Other)
  Sender: FDA-Public Use
  Company Number: None

PATIENT
  Age: 67 Year
  Sex: Female

DRUGS (5)
  1. MYCOPHENOLATE MOFETIL [Suspect]
     Active Substance: MYCOPHENOLATE MOFETIL
     Indication: Neuromyelitis optica spectrum disorder
     Dosage: 1000 MILLIGRAM, BID (EVERY 12 HOUR)
     Route: 065
  2. TACROLIMUS [Suspect]
     Active Substance: TACROLIMUS
     Indication: Neuromyelitis optica spectrum disorder
     Dosage: 1.5 MILLIGRAM, BID (EVERY 12 HOUR)
     Route: 065
  3. PREDNISONE [Suspect]
     Active Substance: PREDNISONE
     Indication: Neuromyelitis optica spectrum disorder
     Dosage: 10 MILLIGRAM, QD (EVERY 1 DAY)
     Route: 048
  4. PREDNISONE [Suspect]
     Active Substance: PREDNISONE
     Dosage: 60 MILLIGRAM, QD (EVERY 1 DAY)
     Route: 048
  5. Euthyroxe [Concomitant]
     Indication: Prophylaxis
     Dosage: 75 MICROGRAM, QD (EVERY 1 DAY)
     Route: 048

REACTIONS (3)
  - Secondary immunodeficiency [Recovering/Resolving]
  - Neuromyelitis optica spectrum disorder [Recovered/Resolved]
  - Disease recurrence [Recovered/Resolved]
